FAERS Safety Report 5170637-3 (Version None)
Quarter: 2006Q4

REPORT INFORMATION
  Report Type: 
  Country: None (occurrence: None)
  Receive Date: 20061205
  Receipt Date: 20061121
  Transmission Date: 20070319
  Serious: Yes (Death)
  Sender: FDA-Public Use
  Company Number: 2006144437

PATIENT
  Sex: Female

DRUGS (1)
  1. SILDENAFIL CITRATE [Suspect]
     Indication: PULMONARY HYPERTENSION

REACTIONS (1)
  - DEATH [None]
